FAERS Safety Report 8269820-X (Version None)
Quarter: 2012Q2

REPORT INFORMATION
  Report Type: 
  Country: None (occurrence: None)
  Receive Date: 20120410
  Receipt Date: 20120326
  Transmission Date: 20120825
  Serious: Yes (Other)
  Sender: FDA-Public Use
  Company Number: JP-JNJFOC-20120403390

PATIENT
  Sex: Male

DRUGS (5)
  1. NORVIR [Concomitant]
     Indication: HIV INFECTION
     Route: 048
     Dates: start: 20090101
  2. PSYCHOTROPICS NOS [Concomitant]
     Indication: DEPRESSION
     Route: 065
  3. DIGESTIVE MEDICINE [Concomitant]
     Route: 065
  4. PREZISTA [Suspect]
     Indication: HIV INFECTION
     Route: 048
     Dates: start: 20090101
  5. TRUVADA [Concomitant]
     Indication: HIV INFECTION
     Route: 048
     Dates: start: 20090101

REACTIONS (5)
  - ABDOMINAL DISCOMFORT [None]
  - DEPRESSION [None]
  - FEELING HOT [None]
  - DECREASED APPETITE [None]
  - SLEEP DISORDER [None]
